FAERS Safety Report 9877255 (Version 2)
Quarter: 2014Q2

REPORT INFORMATION
  Report Type: Spontaneous
  Country: US (occurrence: US)
  Receive Date: 20140206
  Receipt Date: 20140415
  Transmission Date: 20141212
  Serious: Yes (Hospitalization)
  Sender: FDA-Public Use
  Company Number: US-BAYER-2014-018372

PATIENT
  Age: 39 Year
  Sex: Female
  Weight: 70.93 kg

DRUGS (8)
  1. YAZ [Suspect]
  2. YASMIN [Suspect]
  3. OCELLA [Suspect]
  4. GIANVI [Suspect]
  5. SYNTHROID [Concomitant]
     Dosage: 100-150 MCG DAILY
     Dates: start: 20090909
  6. MOTRIN [Concomitant]
     Indication: PAIN
     Dosage: 800 MG, EVERY 6 HOURS AS NEEDED
     Dates: start: 20090909
  7. LEVOTHYROXINE [Concomitant]
  8. IBUPROFEN [Concomitant]

REACTIONS (1)
  - Pulmonary embolism [Recovered/Resolved]
